FAERS Safety Report 8168067 (Version 6)
Quarter: 2012Q4

REPORT INFORMATION
  Report Type: 
  Country: US (occurrence: US)
  Receive Date: 20111004
  Receipt Date: 20121001
  Transmission Date: 20130627
  Serious: Yes (Hospitalization, Disabling, Other)
  Sender: FDA-Public Use
  Company Number: US-ELI_LILLY_AND_COMPANY-US201011006945

PATIENT
  Age: 56 Year
  Sex: Female

DRUGS (10)
  1. FORTEO [Suspect]
     Indication: OSTEOPOROSIS
     Dosage: 20 ug, daily (1/D)
     Route: 058
     Dates: start: 20101113
  2. FORTEO [Suspect]
     Dosage: 20 ug, daily (1/D)
     Route: 058
  3. FORTEO [Suspect]
     Dosage: 20 ug, qd
     Route: 058
     Dates: end: 20110829
  4. FORTEO [Suspect]
     Dosage: 20 ug, qd
     Route: 058
  5. FORTEO [Suspect]
     Dosage: 20 ug, qd
     Route: 058
  6. FORTEO [Suspect]
     Dosage: 20 ug, qd
     Route: 058
  7. FORTEO [Suspect]
     Dosage: 20 ug, qd
     Route: 058
  8. FORTEO [Suspect]
     Dosage: 20 ug, qd
  9. FORTEO [Suspect]
     Dosage: 20 ug, qd
     Dates: start: 201110
  10. MIRALAX [Concomitant]
     Indication: CONSTIPATION

REACTIONS (25)
  - Migraine [Unknown]
  - Abasia [Unknown]
  - Hypoaesthesia [Unknown]
  - Amnesia [Unknown]
  - Hypoaesthesia eye [Unknown]
  - Dysarthria [Unknown]
  - Aphasia [Unknown]
  - Muscular weakness [Unknown]
  - Blindness unilateral [Unknown]
  - Fall [Unknown]
  - Femur fracture [Unknown]
  - Hand fracture [Unknown]
  - Upper limb fracture [Unknown]
  - Limb injury [Unknown]
  - Adverse event [Unknown]
  - Neurological symptom [Unknown]
  - Abdominal pain upper [Recovered/Resolved]
  - Abdominal distension [Unknown]
  - Feeling abnormal [Unknown]
  - Injection site bruising [Not Recovered/Not Resolved]
  - Dizziness [Unknown]
  - Underdose [Unknown]
  - Drug dose omission [Unknown]
  - Dizziness [Unknown]
  - Palpitations [Unknown]
